FAERS Safety Report 25911222 (Version 4)
Quarter: 2025Q4

REPORT INFORMATION
  Report Type: Spontaneous
  Country: US (occurrence: US)
  Receive Date: 20251013
  Receipt Date: 20251224
  Transmission Date: 20260117
  Serious: No
  Sender: TRAVERE THERAPEUTICS
  Company Number: US-TRAVERE-2025TVT01627

PATIENT
  Age: 56 Year
  Sex: Female

DRUGS (3)
  1. FILSPARI [Suspect]
     Active Substance: SPARSENTAN
     Indication: IgA nephropathy
     Route: 048
     Dates: start: 20250903
  2. FILSPARI [Suspect]
     Active Substance: SPARSENTAN
     Dosage: TWO 200 MG TABLETS
     Route: 048
     Dates: start: 202509
  3. OZEMPIC [Suspect]
     Active Substance: SEMAGLUTIDE
     Indication: Product used for unknown indication
     Dosage: 0.25
     Dates: start: 20251011

REACTIONS (12)
  - Headache [Unknown]
  - Eye pruritus [Unknown]
  - Ear pruritus [Unknown]
  - Therapeutic response unexpected [Unknown]
  - Dizziness postural [Unknown]
  - Product dose omission issue [Unknown]
  - Nausea [Recovering/Resolving]
  - Rhinovirus infection [Recovering/Resolving]
  - Cough [Unknown]
  - Aphonia [Unknown]
  - Viral infection [Unknown]
  - Gastric ulcer [Unknown]
